FAERS Safety Report 6545873-1 (Version None)
Quarter: 2010Q1

REPORT INFORMATION
  Report Type: 
  Country: None (occurrence: None)
  Receive Date: 20100121
  Receipt Date: 20090427
  Transmission Date: 20100710
  Serious: No
  Sender: FDA-Public Use
  Company Number: US-ALLERGAN-0905778US

PATIENT
  Age: 69 Year
  Sex: Female

DRUGS (1)
  1. TAZORAC [Suspect]
     Indication: PHOTODERMATOSIS
     Route: 061

REACTIONS (3)
  - CHAPPED LIPS [None]
  - LIP HAEMORRHAGE [None]
  - LIP PAIN [None]
